FAERS Safety Report 12916845 (Version 1)
Quarter: 2016Q4

REPORT INFORMATION
  Report Type: Spontaneous
  Country: US (occurrence: US)
  Receive Date: 20161107
  Receipt Date: 20161107
  Transmission Date: 20170207
  Serious: No
  Sender: FDA-Public Use
  Company Number: US-AMGEN-USASP2016105716

PATIENT
  Sex: Female

DRUGS (1)
  1. ARANESP [Suspect]
     Active Substance: DARBEPOETIN ALFA
     Indication: PRODUCT USED FOR UNKNOWN INDICATION
     Dosage: 200 UNIT, Q2WK (IF HER RED BLOOD CELLS ARE UNDER 12)
     Route: 065

REACTIONS (1)
  - Red blood cell count abnormal [Unknown]

NARRATIVE: CASE EVENT DATE: 2016
